FAERS Safety Report 9343647 (Version 3)
Quarter: 2013Q4

REPORT INFORMATION
  Report Type: Spontaneous
  Country: GB (occurrence: None)
  Receive Date: 20130610
  Receipt Date: 20131118
  Transmission Date: 20140711
  Serious: Yes (Other)
  Sender: FDA-Public Use
  Company Number: AUR-APL-2013-04673

PATIENT
  Age: 80 Year
  Sex: Female

DRUGS (10)
  1. ALENDRONIC ACID [Suspect]
     Indication: OSTEOPOROSIS
     Dosage: 70 MG, 1 IN 1 WK, ORAL
     Route: 048
     Dates: start: 20121101, end: 20130515
  2. CO-AMILOFRUSE (FRUMIL) [Concomitant]
  3. CO-CODAMOL (PANADEINE CO) [Concomitant]
  4. COLECALCIFEROL (COLECALCIFEROL) [Concomitant]
  5. DIGOXIN (DIGOXIN) [Concomitant]
  6. FYBOGEL [Concomitant]
  7. GAVISCON (GAVISCON /00237601/) [Concomitant]
  8. MIGRALEVE (PANADEINE CO) [Concomitant]
  9. SIMVASTATIN (SIMVASTATIN) [Concomitant]
  10. WARFARIN (WARFARIN) [Concomitant]

REACTIONS (1)
  - Varicose vein [None]
